FAERS Safety Report 9747530 (Version 2)
Quarter: 2013Q4

REPORT INFORMATION
  Report Type: Spontaneous
  Country: DE (occurrence: DE)
  Receive Date: 20131212
  Receipt Date: 20131226
  Transmission Date: 20140711
  Serious: Yes (Other)
  Sender: FDA-Public Use
  Company Number: DE-AMGEN-DEUSP2013086313

PATIENT
  Age: 25 Year
  Sex: Male
  Weight: 74 kg

DRUGS (4)
  1. NPLATE [Suspect]
     Indication: THROMBOCYTOPENIA
     Dosage: 500 MUG,EVERY 5 DAYS
     Route: 058
     Dates: start: 201004
  2. FOLICOMBIN [Concomitant]
     Dosage: UNK UNK, BID
     Dates: start: 20131107
  3. CEFUROXIM                          /00454602/ [Concomitant]
     Dosage: UNK UNK, BID
     Dates: start: 20131209, end: 20131215
  4. FERRO SANOL [Concomitant]
     Dosage: UNK
     Dates: start: 20131211

REACTIONS (1)
  - Myelofibrosis [Not Recovered/Not Resolved]
